FAERS Safety Report 17033078 (Version 3)
Quarter: 2020Q4

REPORT INFORMATION
  Report Type: Report from Study
  Country: FR (occurrence: FR)
  Receive Date: 20191114
  Receipt Date: 20201130
  Transmission Date: 20210113
  Serious: Yes (Other)
  Sender: FDA-Public Use
  Company Number: FR-BRISTOL-MYERS SQUIBB COMPANY-BMS-2018-080559

PATIENT
  Age: 63 Year
  Sex: Female

DRUGS (1)
  1. NIVOLUMAB [Suspect]
     Active Substance: NIVOLUMAB
     Indication: RENAL CELL CARCINOMA
     Dosage: 240 MILLIGRAM, Q2WK
     Route: 042
     Dates: start: 20180417

REACTIONS (13)
  - Xerophthalmia [Not Recovered/Not Resolved]
  - Bronchitis [Recovered/Resolved]
  - Malignant neoplasm progression [Recovered/Resolved]
  - Dry skin [Not Recovered/Not Resolved]
  - Headache [Recovered/Resolved]
  - Rhinitis [Recovered/Resolved]
  - Onycholysis [Not Recovered/Not Resolved]
  - Constipation [Not Recovered/Not Resolved]
  - Rhinorrhoea [Recovered/Resolved]
  - Cutaneous sarcoidosis [Not Recovered/Not Resolved]
  - Arthralgia [Not Recovered/Not Resolved]
  - Gingivitis [Recovered/Resolved]
  - Muscle spasms [Recovered/Resolved]

NARRATIVE: CASE EVENT DATE: 20180502
